FAERS Safety Report 9223114 (Version 1)
Quarter: 2013Q2

REPORT INFORMATION
  Report Type: Spontaneous
  Country: US (occurrence: None)
  Receive Date: 20130409
  Receipt Date: 20130409
  Transmission Date: 20140414
  Serious: Yes (Disabling, Other)
  Sender: FDA-Public Use
  Company Number: None

PATIENT
  Sex: Male

DRUGS (1)
  1. JANUVIA [Suspect]
     Indication: DIABETES MELLITUS
     Dosage: 100MG  1 TABLET DAILY

REACTIONS (7)
  - Genital swelling [None]
  - Pain in extremity [None]
  - Malaise [None]
  - Gastrointestinal disorder [None]
  - Cardiac disorder [None]
  - Vomiting [None]
  - Unevaluable event [None]
